FAERS Safety Report 5846576-9 (Version None)
Quarter: 2008Q3

REPORT INFORMATION
  Report Type: 
  Country: None (occurrence: None)
  Receive Date: 20080815
  Receipt Date: 20080804
  Transmission Date: 20090109
  Serious: Yes (Hospitalization)
  Sender: FDA-Public Use
  Company Number: FR-ELI_LILLY_AND_COMPANY-FR200808000345

PATIENT
  Sex: Female

DRUGS (1)
  1. ALIMTA [Suspect]

REACTIONS (4)
  - DYSPNOEA [None]
  - LUNG DISORDER [None]
  - LUNG INFILTRATION [None]
  - PULMONARY EMBOLISM [None]
